FAERS Safety Report 4790834-6 (Version None)
Quarter: 2005Q4

REPORT INFORMATION
  Report Type: 
  Country: None (occurrence: None)
  Receive Date: 20051006
  Receipt Date: 20050926
  Transmission Date: 20060501
  Serious: Yes (Other)
  Sender: FDA-Public Use
  Company Number: GB-ABBOTT-05P-167-0312167-00

PATIENT
  Age: 41 Year
  Sex: Male

DRUGS (6)
  1. KALETRA [Suspect]
     Indication: HIV TEST POSITIVE
     Dates: start: 20031101
  2. STAVUDINE [Suspect]
     Indication: HIV TEST POSITIVE
     Route: 048
     Dates: start: 19981201, end: 20031101
  3. DIDANOSINE [Suspect]
     Indication: HIV TEST POSITIVE
     Route: 048
     Dates: start: 20031101
  4. NEVIRAPINE [Suspect]
     Indication: HIV TEST POSITIVE
     Dates: start: 19981201, end: 20031101
  5. TENOFOVIR [Suspect]
     Indication: HIV TEST POSITIVE
     Dates: start: 20031101, end: 20040801
  6. REYATAZ [Concomitant]
     Indication: DRUG USE FOR UNKNOWN INDICATION
     Dates: start: 20040801

REACTIONS (4)
  - CONDITION AGGRAVATED [None]
  - DRUG RESISTANCE [None]
  - PNEUMOCYSTIS JIROVECI PNEUMONIA [None]
  - VIRAL LOAD INCREASED [None]
